FAERS Safety Report 17327216 (Version 1)
Quarter: 2020Q1

REPORT INFORMATION
  Report Type: Spontaneous
  Country: US (occurrence: US)
  Receive Date: 20200127
  Receipt Date: 20200127
  Transmission Date: 20200409
  Serious: Yes (Other)
  Sender: FDA-Public Use
  Company Number: US-FRESENIUS KABI-FK202000810

PATIENT
  Age: 51 Year
  Sex: Female

DRUGS (3)
  1. OXALIPLATIN (MANUFACTURER UNKNOWN) [Suspect]
     Active Substance: OXALIPLATIN
     Indication: GASTROINTESTINAL CARCINOMA
     Route: 065
  2. LEUCOVORIN CALCIUM (MANUFACTURER UNKNOWN) [Suspect]
     Active Substance: LEUCOVORIN CALCIUM
     Indication: GASTROINTESTINAL CARCINOMA
     Route: 065
  3. FLUOROURACIL (MANUFACTURER UNKNOWN) [Suspect]
     Active Substance: FLUOROURACIL
     Indication: GASTROINTESTINAL CARCINOMA
     Route: 065

REACTIONS (1)
  - Nicotinic acid deficiency [Unknown]
